FAERS Safety Report 24465829 (Version 1)
Quarter: 2024Q4

REPORT INFORMATION
  Report Type: Report from Study
  Country: US (occurrence: US)
  Receive Date: 20241018
  Receipt Date: 20241018
  Transmission Date: 20250115
  Serious: No
  Sender: ROCHE
  Company Number: US-ROCHE-3540550

PATIENT
  Age: 68 Year
  Sex: Female

DRUGS (14)
  1. XOLAIR [Suspect]
     Active Substance: OMALIZUMAB
     Indication: Asthma
     Dosage: NO
     Route: 058
     Dates: start: 2020, end: 202312
  2. XOLAIR [Suspect]
     Active Substance: OMALIZUMAB
     Route: 058
     Dates: start: 20170927
  3. ALBUTEROL [Concomitant]
     Active Substance: ALBUTEROL
  4. ASPIRIN [Concomitant]
     Active Substance: ASPIRIN
  5. AZELASTINE [Concomitant]
     Active Substance: AZELASTINE
  6. BUDESONIDE [Concomitant]
     Active Substance: BUDESONIDE
  7. CETIRIZINE HYDROCHLORIDE [Concomitant]
     Active Substance: CETIRIZINE HYDROCHLORIDE
  8. DILTIAZEM [Concomitant]
     Active Substance: DILTIAZEM
  9. DONEPEZIL [Concomitant]
     Active Substance: DONEPEZIL
  10. EPINEPHRINE [Concomitant]
     Active Substance: EPINEPHRINE
  11. ESTRADIOL [Concomitant]
     Active Substance: ESTRADIOL
  12. FLUOXETINE [Concomitant]
     Active Substance: FLUOXETINE HYDROCHLORIDE
  13. LOSARTAN [Concomitant]
     Active Substance: LOSARTAN
  14. MIRTAZAPINE [Concomitant]
     Active Substance: MIRTAZAPINE

REACTIONS (1)
  - Asthma [Not Recovered/Not Resolved]

NARRATIVE: CASE EVENT DATE: 20240301
